FAERS Safety Report 21010895 (Version 1)
Quarter: 2022Q2

REPORT INFORMATION
  Report Type: Spontaneous
  Country: SE (occurrence: SE)
  Receive Date: 20220627
  Receipt Date: 20220627
  Transmission Date: 20220721
  Serious: Yes (Disabling)
  Sender: FDA-Public Use
  Company Number: SE-ANIPHARMA-2022-SE-000015

PATIENT
  Age: 58 Year
  Sex: Male

DRUGS (3)
  1. CANDESARTAN CILEXETIL [Suspect]
     Active Substance: CANDESARTAN CILEXETIL
     Indication: Hypertension
     Dosage: 32 MG DAILY
     Route: 048
     Dates: start: 20190619, end: 20220609
  2. ALPRAZOLAM [Concomitant]
     Active Substance: ALPRAZOLAM
     Dosage: 0.25 MG 1 TABLET MX 5 TIMES/DAY 0.25 MG
     Route: 048
     Dates: start: 20200101
  3. RITALIN [Suspect]
     Active Substance: METHYLPHENIDATE HYDROCHLORIDE
     Dosage: 10 MG 5 TIMES/DAY X2 TABLETS
     Route: 048
     Dates: start: 20050505

REACTIONS (2)
  - Hypoaesthesia [Unknown]
  - Abdominal pain [Unknown]

NARRATIVE: CASE EVENT DATE: 20190630
